FAERS Safety Report 14044275 (Version 5)
Quarter: 2019Q1

REPORT INFORMATION
  Report Type: Report from Study
  Country: US (occurrence: US)
  Receive Date: 20171004
  Receipt Date: 20190205
  Transmission Date: 20190417
  Serious: Yes (Disabling, Other)
  Sender: FDA-Public Use
  Company Number: US-SA-2016SA228123

PATIENT
  Age: 40 Year
  Sex: Male

DRUGS (3)
  1. AUBAGIO [Concomitant]
     Active Substance: TERIFLUNOMIDE
     Indication: MULTIPLE SCLEROSIS
     Dosage: 14 MG,QD
     Route: 048
     Dates: start: 20151014, end: 20161104
  2. AUBAGIO [Concomitant]
     Active Substance: TERIFLUNOMIDE
     Dosage: 14 MG,QD
     Route: 048
     Dates: start: 20180101
  3. ALEMTUZUMAB [Suspect]
     Active Substance: ALEMTUZUMAB
     Indication: MULTIPLE SCLEROSIS
     Dosage: 12 MG,QD
     Route: 041
     Dates: start: 20161128, end: 20161202

REACTIONS (48)
  - Hypoaesthesia [Not Recovered/Not Resolved]
  - Escherichia urinary tract infection [Recovered/Resolved]
  - Scab [Not Recovered/Not Resolved]
  - Hypoacusis [Not Recovered/Not Resolved]
  - Myalgia [Not Recovered/Not Resolved]
  - Peroneal nerve palsy [Not Recovered/Not Resolved]
  - Condition aggravated [Not Recovered/Not Resolved]
  - Disability [Not Recovered/Not Resolved]
  - Neoplasm malignant [Unknown]
  - Candida infection [Recovered/Resolved]
  - Headache [Not Recovered/Not Resolved]
  - Dyspnoea [Not Recovered/Not Resolved]
  - Malaise [Not Recovered/Not Resolved]
  - Cough [Not Recovered/Not Resolved]
  - Tremor [Not Recovered/Not Resolved]
  - Feeling abnormal [Not Recovered/Not Resolved]
  - Musculoskeletal stiffness [Not Recovered/Not Resolved]
  - Urinary tract infection [Unknown]
  - Dysuria [Not Recovered/Not Resolved]
  - Ill-defined disorder [Not Recovered/Not Resolved]
  - Hemiparesis [Not Recovered/Not Resolved]
  - Gait disturbance [Not Recovered/Not Resolved]
  - Blood pressure increased [Unknown]
  - Muscle spasticity [Not Recovered/Not Resolved]
  - Drug ineffective [Unknown]
  - Foot fracture [Recovering/Resolving]
  - Skin discolouration [Not Recovered/Not Resolved]
  - Micturition urgency [Not Recovered/Not Resolved]
  - White blood cells urine positive [Unknown]
  - Nuclear magnetic resonance imaging abnormal [Not Recovered/Not Resolved]
  - Wrist fracture [Unknown]
  - Blister [Not Recovered/Not Resolved]
  - Arthralgia [Not Recovered/Not Resolved]
  - Arthropathy [Unknown]
  - Blood pressure abnormal [Not Recovered/Not Resolved]
  - Multiple sclerosis relapse [Not Recovered/Not Resolved]
  - Nuclear magnetic resonance imaging abnormal [Recovering/Resolving]
  - Dysgraphia [Not Recovered/Not Resolved]
  - Fine motor skill dysfunction [Not Recovered/Not Resolved]
  - Pollakiuria [Recovering/Resolving]
  - Fall [Unknown]
  - Balance disorder [Not Recovered/Not Resolved]
  - Pain [Not Recovered/Not Resolved]
  - Grip strength decreased [Not Recovered/Not Resolved]
  - Pruritus [Not Recovered/Not Resolved]
  - General physical health deterioration [Not Recovered/Not Resolved]
  - Decreased immune responsiveness [Unknown]
  - CD4 lymphocytes decreased [Not Recovered/Not Resolved]

NARRATIVE: CASE EVENT DATE: 2016
